FAERS Safety Report 10502228 (Version 1)
Quarter: 2014Q4

REPORT INFORMATION
  Report Type: Spontaneous
  Country: US (occurrence: US)
  Receive Date: 20141007
  Receipt Date: 20141007
  Transmission Date: 20150528
  Serious: No
  Sender: FDA-Public Use
  Company Number: US-009507513-1410USA002402

PATIENT
  Age: 18 Year
  Sex: Male

DRUGS (2)
  1. CLARITIN [Suspect]
     Active Substance: LORATADINE
     Indication: SEASONAL ALLERGY
     Dosage: 10 MG, QD
     Route: 048
     Dates: start: 20140929
  2. APAP [Concomitant]
     Active Substance: ACETAMINOPHEN
     Dosage: UNK, PRN

REACTIONS (1)
  - Overdose [Unknown]
